FAERS Safety Report 5510222-4 (Version None)
Quarter: 2007Q4

REPORT INFORMATION
  Report Type: 
  Country: None (occurrence: None)
  Receive Date: 20071106
  Receipt Date: 20071106
  Transmission Date: 20080405
  Serious: Yes (Other)
  Sender: FDA-Public Use
  Company Number: None

PATIENT
  Sex: Male

DRUGS (8)
  1. REVLIMID [Suspect]
     Indication: MULTIPLE MYELOMA
     Dosage: 25MG DAILY 21D/28D PO
     Route: 048
  2. PREDNISONE TAB [Concomitant]
  3. PAMIDRONATE DISODIUM [Concomitant]
  4. TRAMADOL [Concomitant]
  5. DIGITEK [Concomitant]
  6. TEMAZEPAM [Concomitant]
  7. METHOCARBAMOL [Concomitant]
  8. VERAPAMIL [Concomitant]

REACTIONS (1)
  - MUSCLE SPASMS [None]
